FAERS Safety Report 19998189 (Version 2)
Quarter: 2022Q4

REPORT INFORMATION
  Report Type: Spontaneous
  Country: NL (occurrence: NL)
  Receive Date: 20211026
  Receipt Date: 20221213
  Transmission Date: 20230113
  Serious: Yes (Hospitalization, Other)
  Sender: FDA-Public Use
  Company Number: NL-SA-2021SA229897

PATIENT
  Age: 53 Year
  Sex: Female

DRUGS (9)
  1. PHENPROCOUMON [Suspect]
     Active Substance: PHENPROCOUMON
     Indication: Antiphospholipid syndrome
     Dosage: UNK(TARGET INR 2-3)
     Route: 065
  2. MYCOPHENOLATE MOFETIL [Suspect]
     Active Substance: MYCOPHENOLATE MOFETIL
     Indication: Antiphospholipid syndrome
     Dosage: 1000 MILLIGRAM, BID
     Route: 065
  3. CYCLOPHOSPHAMIDE [Suspect]
     Active Substance: CYCLOPHOSPHAMIDE
     Indication: Antiphospholipid syndrome
     Dosage: 1250 MG, 3 TIMES ONCE A MONTH
     Route: 065
  4. CYCLOPHOSPHAMIDE [Suspect]
     Active Substance: CYCLOPHOSPHAMIDE
     Dosage: 1250 MILLIGRAM, 3XMONTHS(THREE TIMES A MONTH)
     Route: 042
  5. RITUXIMAB [Suspect]
     Active Substance: RITUXIMAB
     Indication: Antiphospholipid syndrome
     Dosage: 375 MG/M2, QW (4 TIMES 375 MG/M2 ONCE A WEEK)
     Route: 065
  6. RITUXIMAB [Suspect]
     Active Substance: RITUXIMAB
     Dosage: 375MG/M2 (MILLIGRAM PER SQUARE METRE) FOUR TIMES WEEKLY
     Route: 065
  7. HYDROXYCHLOROQUINE [Suspect]
     Active Substance: HYDROXYCHLOROQUINE
     Indication: Antiphospholipid syndrome
     Dosage: 400 MILLIGRAM, QD
     Route: 065
  8. UNSPECIFIED INGREDIENT [Concomitant]
     Active Substance: UNSPECIFIED INGREDIENT
     Indication: Antiphospholipid syndrome
     Dosage: UNK
     Route: 065
  9. METHYLPREDNISOLONE [Concomitant]
     Active Substance: METHYLPREDNISOLONE
     Indication: Antiphospholipid syndrome
     Dosage: 1 GRAM, QD
     Route: 065

REACTIONS (6)
  - Drug ineffective [Unknown]
  - Skin lesion [Recovered/Resolved]
  - Treatment failure [Recovered/Resolved]
  - Antiphospholipid syndrome [Recovered/Resolved]
  - Disease progression [Recovered/Resolved]
  - Off label use [Unknown]
